FAERS Safety Report 8045729-1 (Version None)
Quarter: 2012Q1

REPORT INFORMATION
  Report Type: 
  Country: None (occurrence: None)
  Receive Date: 20120113
  Receipt Date: 20120105
  Transmission Date: 20120608
  Serious: Yes (Hospitalization)
  Sender: FDA-Public Use
  Company Number: PHHY2012NZ001896

PATIENT
  Age: 45 Year
  Sex: Female

DRUGS (4)
  1. CLOZAPINE [Suspect]
     Dosage: 500 MG,
  2. VALPROATE SODIUM [Concomitant]
     Dosage: 1 G, BID
  3. CLOZAPINE [Suspect]
     Indication: SCHIZOPHRENIA
     Dosage: 700 MG, DAILY
  4. TRIMETHOPRIM [Concomitant]
     Dosage: UNK UKN, UNK

REACTIONS (10)
  - GAIT DISTURBANCE [None]
  - NEUTROPHIL COUNT INCREASED [None]
  - GENERAL PHYSICAL HEALTH DETERIORATION [None]
  - POLLAKIURIA [None]
  - ANTIPSYCHOTIC DRUG LEVEL INCREASED [None]
  - DIZZINESS [None]
  - C-REACTIVE PROTEIN INCREASED [None]
  - ESCHERICHIA INFECTION [None]
  - DYSURIA [None]
  - WHITE BLOOD CELL COUNT INCREASED [None]
